FAERS Safety Report 5919819-0 (Version None)
Quarter: 2008Q4

REPORT INFORMATION
  Report Type: 
  Country: None (occurrence: None)
  Receive Date: 20081010
  Receipt Date: 20080926
  Transmission Date: 20090506
  Serious: Yes (Other)
  Sender: FDA-Public Use
  Company Number: PHBS2008JP05845

PATIENT
  Age: 74 Year
  Sex: Male

DRUGS (4)
  1. VISUDYNE [Suspect]
     Indication: CHOROIDAL NEOVASCULARISATION
  2. VISUDYNE [Suspect]
     Indication: POLYPOIDAL CHOROIDAL VASCULOPATHY
  3. TRIAMCINOLONE ACETONIDE [Suspect]
     Indication: CHOROIDAL NEOVASCULARISATION
     Dosage: 2 MG DAILY EY
  4. TRIAMCINOLONE ACETONIDE [Suspect]
     Indication: POLYPOIDAL CHOROIDAL VASCULOPATHY
     Dosage: 2 MG DAILY EY

REACTIONS (3)
  - INTRAOCULAR PRESSURE INCREASED [None]
  - RETINAL DETACHMENT [None]
  - VISUAL ACUITY REDUCED [None]
